FAERS Safety Report 6808856-X (Version None)
Quarter: 2010Q2

REPORT INFORMATION
  Report Type: 
  Country: None (occurrence: None)
  Receive Date: 20100630
  Receipt Date: 20090920
  Transmission Date: 20101027
  Serious: No
  Sender: FDA-Public Use
  Company Number: US-PFIZER INC-2009273096

PATIENT
  Sex: Male

DRUGS (2)
  1. TIKOSYN [Suspect]
     Dosage: UNK
     Dates: start: 20090901
  2. BENADRYL [Interacting]
     Indication: INSOMNIA
     Dosage: UNK
     Dates: start: 20090919

REACTIONS (4)
  - DRUG INTERACTION [None]
  - INSOMNIA [None]
  - MALAISE [None]
  - NAUSEA [None]
